FAERS Safety Report 8756727 (Version 3)
Quarter: 2013Q4

REPORT INFORMATION
  Report Type: Spontaneous
  Country: US (occurrence: US)
  Receive Date: 20120828
  Receipt Date: 20131213
  Transmission Date: 20140711
  Serious: Yes (Hospitalization, Other)
  Sender: FDA-Public Use
  Company Number: US-BAYER-2012-086422

PATIENT
  Age: 30 Year
  Sex: Female
  Weight: 106.58 kg

DRUGS (6)
  1. YASMIN [Suspect]
     Indication: CONTRACEPTION
     Dosage: UNK
     Dates: start: 200510, end: 20111231
  2. YASMIN [Suspect]
     Indication: MENSTRUAL CYCLE MANAGEMENT
  3. OFLOXACIN [Concomitant]
  4. METRONIDAZOLE [Concomitant]
  5. AUGMENTIN [Concomitant]
  6. COLACE [Concomitant]

REACTIONS (8)
  - Cholecystectomy [None]
  - Cholecystitis chronic [None]
  - Ovarian cyst [None]
  - Injury [None]
  - Pain [None]
  - Emotional distress [None]
  - Anxiety [None]
  - Psychological trauma [None]
